FAERS Safety Report 13543767 (Version 1)
Quarter: 2017Q2

REPORT INFORMATION
  Report Type: Spontaneous
  Country: CZ (occurrence: CZ)
  Receive Date: 20170515
  Receipt Date: 20170515
  Transmission Date: 20170830
  Serious: Yes (Hospitalization, Other)
  Sender: FDA-Public Use
  Company Number: CZ-SUN PHARMACEUTICAL INDUSTRIES LTD-2017RR-140295

PATIENT
  Age: 32 Year
  Sex: Female

DRUGS (13)
  1. CYTOSINE ARABINOSIDE [Suspect]
     Active Substance: CYTARABINE
     Indication: HODGKIN^S DISEASE
     Dosage: 4 CYCLES
     Route: 065
  2. BLEOMYCIN [Suspect]
     Active Substance: BLEOMYCIN SULFATE
     Indication: HODGKIN^S DISEASE
     Dosage: 6 CYCLES
     Route: 065
  3. NAVELBINE [Suspect]
     Active Substance: VINORELBINE TARTRATE
     Indication: HODGKIN^S DISEASE
     Dosage: 2 CYCLES
     Route: 065
  4. IFOSFAMIDE. [Suspect]
     Active Substance: IFOSFAMIDE
     Indication: HODGKIN^S DISEASE
     Dosage: 3 CYCLES
     Route: 065
  5. DACARBAZINE. [Suspect]
     Active Substance: DACARBAZINE
     Indication: HODGKIN^S DISEASE
     Dosage: 6 CYCLES
     Route: 065
  6. GEMCITABINE [Suspect]
     Active Substance: GEMCITABINE\GEMCITABINE HYDROCHLORIDE
     Indication: HODGKIN^S DISEASE
     Dosage: 2 CYCLES
     Route: 065
  7. CISPLATIN. [Suspect]
     Active Substance: CISPLATIN
     Indication: HODGKIN^S DISEASE
     Dosage: 4 CYCLES
     Route: 065
  8. ETOPOSIDE. [Suspect]
     Active Substance: ETOPOSIDE
     Indication: HODGKIN^S DISEASE
     Dosage: 3 CYCLES
     Route: 065
  9. METHYLPREDNISOLONE. [Suspect]
     Active Substance: METHYLPREDNISOLONE
     Indication: HODGKIN^S DISEASE
     Dosage: 4 CYCLES
     Route: 065
  10. VINBLASTINE [Suspect]
     Active Substance: VINBLASTINE
     Indication: HODGKIN^S DISEASE
     Dosage: 6 CYCLES
     Route: 065
  11. CARBOPLATIN. [Suspect]
     Active Substance: CARBOPLATIN
     Indication: HODGKIN^S DISEASE
     Dosage: 3 CYCLES
     Route: 065
  12. DOXORUBICIN [Suspect]
     Active Substance: DOXORUBICIN
     Indication: HODGKIN^S DISEASE
     Dosage: 6 CYCLES
     Route: 065
  13. DOXORUBICIN [Suspect]
     Active Substance: DOXORUBICIN
     Dosage: 4 CYCLES
     Route: 065

REACTIONS (1)
  - Drug ineffective [Unknown]
